FAERS Safety Report 12654132 (Version 1)
Quarter: 2016Q3

REPORT INFORMATION
  Report Type: Spontaneous
  Country: US (occurrence: None)
  Receive Date: 20160815
  Receipt Date: 20160815
  Transmission Date: 20161109
  Serious: Yes (Other)
  Sender: FDA-Public Use
  Company Number: None

PATIENT
  Age: 45 Year
  Sex: Male
  Weight: 79.38 kg

DRUGS (11)
  1. WARFARIN [Concomitant]
     Active Substance: WARFARIN
  2. ANDROGEL [Concomitant]
     Active Substance: TESTOSTERONE
  3. FISH OIL [Concomitant]
     Active Substance: FISH OIL
  4. ASPIRIN. [Concomitant]
     Active Substance: ASPIRIN
  5. ATRIPLA [Concomitant]
     Active Substance: EFAVIRENZ\EMTRICITABINE\TENOFOVIR DISOPROXIL FUMARATE
  6. CALCIUM [Concomitant]
     Active Substance: CALCIUM
  7. FLUTICASONE [Concomitant]
     Active Substance: FLUTICASONE\FLUTICASONE PROPIONATE
  8. HYDROXYZINE [Concomitant]
     Active Substance: HYDROXYZINE\HYDROXYZINE HYDROCHLORIDE
  9. SERTRALINE [Suspect]
     Active Substance: SERTRALINE HYDROCHLORIDE
     Indication: POST-TRAUMATIC STRESS DISORDER
     Dosage: 1 TABLET ONCE A DAY
     Route: 048
     Dates: start: 20160606, end: 20160722
  10. COQ10 [Concomitant]
     Active Substance: UBIDECARENONE
  11. ARTIFICIAL AORTIC VALVE [Concomitant]

REACTIONS (10)
  - Abnormal faeces [None]
  - Mood swings [None]
  - Diarrhoea [None]
  - Depression [None]
  - Flashback [None]
  - Abnormal behaviour [None]
  - Muscle spasms [None]
  - Screaming [None]
  - Abnormal dreams [None]
  - Anger [None]

NARRATIVE: CASE EVENT DATE: 20160616
